FAERS Safety Report 13590650 (Version 1)
Quarter: 2017Q2

REPORT INFORMATION
  Report Type: Spontaneous
  Country: US (occurrence: US)
  Receive Date: 20170530
  Receipt Date: 20170530
  Transmission Date: 20170830
  Serious: No
  Sender: FDA-Public Use
  Company Number: US-MIST-STN-2017-0232

PATIENT
  Age: 71 Year
  Sex: Male
  Weight: 72.64 kg

DRUGS (1)
  1. STENDRA [Suspect]
     Active Substance: AVANAFIL
     Indication: PRODUCT USED FOR UNKNOWN INDICATION
     Dosage: ONE HALF 200MG TABLET
     Route: 048
     Dates: start: 201703

REACTIONS (4)
  - Erythema [Unknown]
  - Skin exfoliation [Unknown]
  - Wrong technique in product usage process [Unknown]
  - Rash macular [Unknown]

NARRATIVE: CASE EVENT DATE: 201703
